FAERS Safety Report 8444879-5 (Version None)
Quarter: 2012Q2

REPORT INFORMATION
  Report Type: 
  Country: None (occurrence: None)
  Receive Date: 20120618
  Receipt Date: 20120614
  Transmission Date: 20120825
  Serious: Yes (Death)
  Sender: FDA-Public Use
  Company Number: PHHY2012NL050910

PATIENT
  Age: 61 Year
  Sex: Male

DRUGS (4)
  1. ACE INHIBITOR NOS [Concomitant]
     Indication: HYPERTENSION
  2. DIURETICS [Concomitant]
     Indication: HYPERTENSION
  3. CALCIUM CHANNEL BLOCKERS [Concomitant]
     Indication: HYPERTENSION
  4. EVEROLIMUS [Suspect]
     Indication: METASTATIC RENAL CELL CARCINOMA
     Dosage: 10 MG, QD
     Route: 048

REACTIONS (3)
  - DEATH [None]
  - NEOPLASM MALIGNANT [None]
  - NEOPLASM PROGRESSION [None]
